FAERS Safety Report 7825348-X (Version None)
Quarter: 2011Q4

REPORT INFORMATION
  Report Type: 
  Country: None (occurrence: None)
  Receive Date: 20111019
  Receipt Date: 20111010
  Transmission Date: 20120403
  Serious: Yes (Death)
  Sender: FDA-Public Use
  Company Number: US-BAXTER-2011BH031658

PATIENT
  Sex: Female

DRUGS (1)
  1. DIANEAL [Suspect]
     Indication: PERITONEAL DIALYSIS
     Dates: start: 20110501

REACTIONS (4)
  - ISCHAEMIC GASTRITIS [None]
  - PERIPHERAL VASCULAR DISORDER [None]
  - CLOSTRIDIAL INFECTION [None]
  - SEPSIS [None]
